FAERS Safety Report 8388686-0 (Version None)
Quarter: 2012Q2

REPORT INFORMATION
  Report Type: 
  Country: None (occurrence: None)
  Receive Date: 20120526
  Receipt Date: 20120521
  Transmission Date: 20120825
  Serious: Yes (Hospitalization, Other)
  Sender: FDA-Public Use
  Company Number: US-AMGEN-USASP2012031745

PATIENT
  Age: 50 Year
  Sex: Female

DRUGS (1)
  1. ENBREL [Suspect]
     Indication: RHEUMATOID ARTHRITIS
     Dosage: 50 MG, QWK
     Dates: start: 20040501, end: 20120512

REACTIONS (5)
  - PULMONARY EMBOLISM [None]
  - CONFUSIONAL STATE [None]
  - CELLULITIS [None]
  - RHEUMATOID ARTHRITIS [None]
  - BLOOD DISORDER [None]
